FAERS Safety Report 9325809 (Version 1)
Quarter: 2013Q2

REPORT INFORMATION
  Report Type: Spontaneous
  Country: US (occurrence: None)
  Receive Date: 20130603
  Receipt Date: 20130603
  Transmission Date: 20140414
  Serious: Yes (Other)
  Sender: FDA-Public Use
  Company Number: None

PATIENT
  Sex: Female
  Weight: 86.18 kg

DRUGS (1)
  1. SYNTHROID [Suspect]

REACTIONS (3)
  - Abdominal discomfort [None]
  - Nervousness [None]
  - Product substitution issue [None]
